FAERS Safety Report 25466599 (Version 2)
Quarter: 2025Q3

REPORT INFORMATION
  Report Type: Spontaneous
  Country: JP (occurrence: JP)
  Receive Date: 20250623
  Receipt Date: 20250714
  Transmission Date: 20251021
  Serious: Yes (Hospitalization)
  Sender: TAKEDA
  Company Number: JP-TAKEDA-2025TJP006117

PATIENT
  Age: 7 Decade
  Sex: Female

DRUGS (2)
  1. FRUZAQLA [Suspect]
     Active Substance: FRUQUINTINIB
     Indication: Colon cancer recurrent
     Dosage: 5 MILLIGRAM, QD
     Dates: start: 20250603
  2. FRUZAQLA [Suspect]
     Active Substance: FRUQUINTINIB

REACTIONS (1)
  - Pyrexia [Recovered/Resolved]
